FAERS Safety Report 4589360-9 (Version None)
Quarter: 2005Q1

REPORT INFORMATION
  Report Type: 
  Country: None (occurrence: None)
  Receive Date: 20050216
  Receipt Date: 20050204
  Transmission Date: 20050727
  Serious: Yes (Hospitalization)
  Sender: FDA-Public Use
  Company Number: 2005-BP-01740BP

PATIENT

DRUGS (3)
  1. VIRAMUNE [Suspect]
     Indication: HIV INFECTION
  2. COMBIVIR [Suspect]
  3. PROZAC [Concomitant]

REACTIONS (3)
  - DRUG INEFFECTIVE [None]
  - HEPATIC ENZYME ABNORMAL [None]
  - MAJOR DEPRESSION [None]
